FAERS Safety Report 15255462 (Version 1)
Quarter: 2018Q3

REPORT INFORMATION
  Report Type: Spontaneous
  Country: US (occurrence: US)
  Receive Date: 20180717
  Receipt Date: 20180717
  Transmission Date: 20181010
  Serious: Yes (Disabling)
  Sender: FDA-Public Use
  Company Number: None

PATIENT
  Age: 36 Year
  Sex: Female
  Weight: 56.25 kg

DRUGS (2)
  1. GADAVIST [Suspect]
     Active Substance: GADOBUTROL
     Indication: NUCLEAR MAGNETIC RESONANCE IMAGING
     Dosage: ?          OTHER STRENGTH:NOT SURE;QUANTITY:4 INJECTION(S);OTHER FREQUENCY:4TH ADMINISTRATION;?
     Route: 042
     Dates: start: 20180402, end: 20180402
  2. T3 [Concomitant]
     Active Substance: LIOTHYRONINE SODIUM

REACTIONS (9)
  - Bone pain [None]
  - Arthralgia [None]
  - Asthenia [None]
  - Lethargy [None]
  - Headache [None]
  - Skin burning sensation [None]
  - Heart rate irregular [None]
  - Eye pain [None]
  - Heart rate increased [None]

NARRATIVE: CASE EVENT DATE: 20180402
